FAERS Safety Report 6928561-9 (Version None)
Quarter: 2010Q3

REPORT INFORMATION
  Report Type: 
  Country: None (occurrence: None)
  Receive Date: 20100817
  Receipt Date: 20100811
  Transmission Date: 20110219
  Serious: Yes (Other)
  Sender: FDA-Public Use
  Company Number: IE-BRISTOL-MYERS SQUIBB COMPANY-15005077

PATIENT
  Age: 30 Year
  Sex: Female
  Weight: 98 kg

DRUGS (5)
  1. REYATAZ [Suspect]
     Indication: HIV INFECTION
     Route: 048
  2. NORVIR [Suspect]
     Indication: HIV INFECTION
     Route: 048
  3. EPZICOM [Suspect]
     Indication: HIV INFECTION
     Dosage: 1DF:1TABS
     Route: 048
  4. CITALOPRAM HYDROBROMIDE [Suspect]
  5. HEROIN [Suspect]
     Route: 042

REACTIONS (3)
  - CAESAREAN SECTION [None]
  - LIVE BIRTH [None]
  - PREGNANCY [None]
